FAERS Safety Report 14466541 (Version 2)
Quarter: 2025Q4

REPORT INFORMATION
  Report Type: Spontaneous
  Country: EU (occurrence: EU)
  Receive Date: 20180131
  Receipt Date: 20251212
  Transmission Date: 20260118
  Serious: Yes (Life-Threatening, Hospitalization, Other)
  Sender: ALKEM
  Company Number: None

PATIENT
  Age: 26 Year
  Sex: Male
  Weight: 74 kg

DRUGS (3)
  1. MYCOPHENOLATE MOFETIL [Suspect]
     Active Substance: MYCOPHENOLATE MOFETIL
     Indication: Immunosuppressant drug therapy
     Dosage: 720 MILLIGRAM, BID
     Route: 065
     Dates: start: 2013
  2. MYCOPHENOLATE MOFETIL [Suspect]
     Active Substance: MYCOPHENOLATE MOFETIL
     Dosage: 360 MG, BID (TAPERED DOSE)
     Route: 065
  3. METHYLPREDNISOLONE [Suspect]
     Active Substance: METHYLPREDNISOLONE
     Indication: Immunosuppressant drug therapy
     Dosage: 4 MG, QD
     Route: 065
     Dates: start: 2013

REACTIONS (8)
  - Post transplant lymphoproliferative disorder [Recovered/Resolved]
  - Cytomegalovirus infection reactivation [Unknown]
  - Renal transplant failure [Unknown]
  - Sepsis [Recovered/Resolved]
  - Pneumonia cytomegaloviral [Unknown]
  - Leukopenia [Unknown]
  - Pneumocystis jirovecii pneumonia [Unknown]
  - Pneumonia escherichia [Unknown]
